FAERS Safety Report 6069672-2 (Version None)
Quarter: 2009Q1

REPORT INFORMATION
  Report Type: 
  Country: None (occurrence: None)
  Receive Date: 20090209
  Receipt Date: 20090128
  Transmission Date: 20090719
  Serious: Yes (Hospitalization)
  Sender: FDA-Public Use
  Company Number: US-JNJFOC-20081200629

PATIENT
  Sex: Female
  Weight: 56.7 kg

DRUGS (3)
  1. REMICADE [Suspect]
     Indication: CROHN'S DISEASE
     Route: 042
  2. ASACOL [Concomitant]
     Indication: CROHN'S DISEASE
  3. MERCAPTOPURINE [Concomitant]
     Indication: CROHN'S DISEASE

REACTIONS (4)
  - JOINT SWELLING [None]
  - MUSCULOSKELETAL PAIN [None]
  - SYNCOPE [None]
  - UPPER RESPIRATORY TRACT INFECTION [None]
